FAERS Safety Report 5546090-4 (Version None)
Quarter: 2007Q4

REPORT INFORMATION
  Report Type: 
  Country: None (occurrence: None)
  Receive Date: 20071211
  Receipt Date: 20071003
  Transmission Date: 20080405
  Serious: No
  Sender: FDA-Public Use
  Company Number: US-BRISTOL-MYERS SQUIBB COMPANY-13928718

PATIENT
  Age: 29 Year
  Sex: Female
  Weight: 113 kg

DRUGS (6)
  1. EMSAM [Suspect]
     Route: 062
  2. KLONOPIN [Concomitant]
  3. DALMANE [Concomitant]
  4. AMBIEN CR [Concomitant]
  5. SEROQUEL [Concomitant]
  6. PROTONIX [Concomitant]

REACTIONS (1)
  - APPLICATION SITE ERYTHEMA [None]
